FAERS Safety Report 23989953 (Version 1)
Quarter: 2024Q2

REPORT INFORMATION
  Report Type: Spontaneous
  Country: CN (occurrence: CN)
  Receive Date: 20240619
  Receipt Date: 20240619
  Transmission Date: 20240716
  Serious: Yes (Other)
  Sender: FDA-Public Use
  Company Number: CN-PFIZER INC-PV202400078902

PATIENT
  Age: 35 Year
  Sex: Male

DRUGS (1)
  1. EPIRUBICIN [Suspect]
     Active Substance: EPIRUBICIN
     Indication: Follicular lymphoma stage IV
     Dosage: 80.000 MG, 1X/DAY
     Route: 042
     Dates: start: 20240605, end: 20240606

REACTIONS (6)
  - Palpitations [Recovering/Resolving]
  - Chest discomfort [Recovering/Resolving]
  - Sinus bradycardia [Recovered/Resolved]
  - Tricuspid valve incompetence [Recovering/Resolving]
  - Pericardial effusion [Recovering/Resolving]
  - Supraventricular extrasystoles [Unknown]

NARRATIVE: CASE EVENT DATE: 20240606
